FAERS Safety Report 22977289 (Version 4)
Quarter: 2023Q4

REPORT INFORMATION
  Report Type: Report from Study
  Country: US (occurrence: US)
  Receive Date: 20230925
  Receipt Date: 20231114
  Transmission Date: 20240110
  Serious: Yes (Hospitalization)
  Sender: FDA-Public Use
  Company Number: US-TAKEDA-2023TUS068633

PATIENT
  Age: 38 Year
  Sex: Male
  Weight: 106 kg

DRUGS (5)
  1. MARIBAVIR [Suspect]
     Active Substance: MARIBAVIR
     Indication: Cytomegalovirus infection
     Dosage: 400 MILLIGRAM, BID
     Route: 048
     Dates: start: 20230715, end: 20230905
  2. MYFORTIC [Concomitant]
     Active Substance: MYCOPHENOLATE SODIUM
     Indication: Post procedural complication
     Dosage: 360 MILLIGRAM, BID
     Route: 065
     Dates: start: 20230524
  3. TACROLIMUS [Concomitant]
     Active Substance: TACROLIMUS
     Indication: Post procedural complication
     Dosage: 2 MILLIGRAM, BID
     Route: 065
     Dates: start: 20230217
  4. SIROLIMUS [Concomitant]
     Active Substance: SIROLIMUS
     Indication: Post procedural complication
     Dosage: 2 MILLIGRAM, QD
     Route: 065
     Dates: start: 20230607
  5. ALLOPURINOL [Concomitant]
     Active Substance: ALLOPURINOL
     Indication: Gout
     Dosage: 100 MILLIGRAM, QD
     Route: 065
     Dates: start: 20230314

REACTIONS (5)
  - Hospitalisation [Unknown]
  - Anaemia [Recovered/Resolved]
  - Haemoglobin decreased [Recovering/Resolving]
  - Haematocrit decreased [Recovering/Resolving]
  - COVID-19 [Unknown]

NARRATIVE: CASE EVENT DATE: 20230716
